FAERS Safety Report 8326202-X (Version None)
Quarter: 2012Q2

REPORT INFORMATION
  Report Type: 
  Country: None (occurrence: None)
  Receive Date: 20120501
  Receipt Date: 20100618
  Transmission Date: 20120825
  Serious: No
  Sender: FDA-Public Use
  Company Number: US-TEVA-2010003359

PATIENT
  Sex: Female
  Weight: 68.1 kg

DRUGS (1)
  1. NUVIGIL [Suspect]
     Indication: NARCOLEPSY
     Dosage: 250 MILLIGRAM;
     Route: 048
     Dates: start: 20100608, end: 20100614

REACTIONS (4)
  - MYALGIA [None]
  - FATIGUE [None]
  - ARTHRALGIA [None]
  - PARAESTHESIA [None]
